FAERS Safety Report 17691498 (Version 1)
Quarter: 2020Q2

REPORT INFORMATION
  Report Type: Spontaneous
  Country: US (occurrence: US)
  Receive Date: 20200422
  Receipt Date: 20200422
  Transmission Date: 20200714
  Serious: Yes (Death)
  Sender: FDA-Public Use
  Company Number: US-ROCHE-2587006

PATIENT
  Age: 56 Year
  Sex: Female

DRUGS (13)
  1. EPIPEN [Concomitant]
     Active Substance: EPINEPHRINE
  2. SPIRONOLACTONE. [Concomitant]
     Active Substance: SPIRONOLACTONE
  3. XOLAIR [Suspect]
     Active Substance: OMALIZUMAB
     Indication: ASTHMA
     Route: 058
     Dates: start: 20171025
  4. ALPRAZOLAM. [Concomitant]
     Active Substance: ALPRAZOLAM
  5. DOXYCYCLINE. [Concomitant]
     Active Substance: DOXYCYCLINE
  6. PRAVASTATIN. [Concomitant]
     Active Substance: PRAVASTATIN
  7. BENADRYL [Concomitant]
     Active Substance: DIPHENHYDRAMINE HYDROCHLORIDE
  8. PROVENTIL [Concomitant]
     Active Substance: ALBUTEROL
  9. PNEUMOVAX 23 [Concomitant]
     Active Substance: PNEUMOCOCCAL VACCINE, POLYVALENT 23
  10. ZITROMAX [Concomitant]
     Active Substance: AZITHROMYCIN
  11. FEXOFENADINE [Concomitant]
     Active Substance: FEXOFENADINE HYDROCHLORIDE
  12. METHOCARBAMOL. [Concomitant]
     Active Substance: METHOCARBAMOL
  13. TRIAMTERENE HCTZ [Concomitant]
     Active Substance: HYDROCHLOROTHIAZIDE\TRIAMTERENE

REACTIONS (1)
  - Death [Fatal]

NARRATIVE: CASE EVENT DATE: 20200408
